FAERS Safety Report 13649705 (Version 2)
Quarter: 2017Q2

REPORT INFORMATION
  Report Type: Spontaneous
  Country: US (occurrence: US)
  Receive Date: 20170614
  Receipt Date: 20170621
  Transmission Date: 20170830
  Serious: Yes (Other)
  Sender: FDA-Public Use
  Company Number: US-TEVA-752830ACC

PATIENT
  Sex: Male

DRUGS (1)
  1. HYDROCODONE BITARTRATE AND ACETAMINOPHEN [Suspect]
     Active Substance: ACETAMINOPHEN\HYDROCODONE BITARTRATE
     Indication: BACK PAIN
     Dosage: DOSE STRENGTH: 7.5/325 MG
     Dates: start: 20161229, end: 20170318

REACTIONS (9)
  - Peripheral swelling [Unknown]
  - C-reactive protein increased [Unknown]
  - Anti-cyclic citrullinated peptide antibody [Unknown]
  - Rheumatoid factor positive [Unknown]
  - Pain in extremity [Unknown]
  - Rheumatoid arthritis [Unknown]
  - Arthralgia [Unknown]
  - Musculoskeletal pain [Unknown]
  - Joint swelling [Unknown]
